FAERS Safety Report 4614628-7 (Version None)
Quarter: 2005Q2

REPORT INFORMATION
  Report Type: 
  Country: None (occurrence: None)
  Receive Date: 20050303
  Receipt Date: 20040615
  Transmission Date: 20051028
  Serious: Yes (Hospitalization)
  Sender: FDA-Public Use
  Company Number: WAES 0406USA01924

PATIENT
  Age: 80 Year
  Sex: Male

DRUGS (13)
  1. PRINIVIL [Suspect]
     Dates: start: 20020702, end: 20020703
  2. FLOMAX [Concomitant]
  3. LUMIGAN [Concomitant]
  4. MINITRAN [Concomitant]
  5. PROSCAR [Concomitant]
  6. ASPIRIN [Concomitant]
  7. FUROSEMIDE [Concomitant]
  8. LOVASTATIN [Concomitant]
  9. METFORMIN HCL [Concomitant]
  10. METOPROLOL [Concomitant]
  11. POTASSIUM CHLORIDE [Concomitant]
  12. TERAZOSIN HYDROCHLORIDE [Concomitant]
  13. TOLAZAMIDE [Concomitant]

REACTIONS (1)
  - HYPOTENSION [None]
